APPROVED DRUG PRODUCT: ROWASA
Active Ingredient: MESALAMINE
Strength: 4GM/60ML
Dosage Form/Route: ENEMA;RECTAL
Application: N019618 | Product #001 | TE Code: AB
Applicant: MYLAN SPECIALTY LP
Approved: Dec 24, 1987 | RLD: Yes | RS: Yes | Type: RX